FAERS Safety Report 13299504 (Version 1)
Quarter: 2017Q1

REPORT INFORMATION
  Report Type: Spontaneous
  Country: JP (occurrence: JP)
  Receive Date: 20170306
  Receipt Date: 20170306
  Transmission Date: 20170428
  Serious: Yes (Hospitalization)
  Sender: FDA-Public Use
  Company Number: JP-ELI_LILLY_AND_COMPANY-JP201701010855

PATIENT
  Age: 59 Year
  Sex: Female

DRUGS (5)
  1. BAYASPIRIN [Concomitant]
     Active Substance: ASPIRIN
  2. PREDONINE [Concomitant]
     Active Substance: PREDNISOLONE
  3. FORTEO [Suspect]
     Active Substance: TERIPARATIDE
     Indication: OSTEOPOROSIS
     Dosage: UNK
     Route: 058
     Dates: start: 20161214
  4. IMIDAPRIL [Concomitant]
     Active Substance: IMIDAPRIL
  5. TENELIA [Concomitant]
     Active Substance: TENELIGLIPTIN

REACTIONS (1)
  - Anaemia [Recovering/Resolving]

NARRATIVE: CASE EVENT DATE: 20170125
